FAERS Safety Report 7729698-7 (Version None)
Quarter: 2011Q3

REPORT INFORMATION
  Report Type: 
  Country: None (occurrence: None)
  Receive Date: 20110906
  Receipt Date: 20110824
  Transmission Date: 20111222
  Serious: Yes (Hospitalization)
  Sender: FDA-Public Use
  Company Number: JP-PFIZER INC-2010177227

PATIENT
  Age: 75 Year
  Sex: Male
  Weight: 61.5 kg

DRUGS (14)
  1. AMIODARONE HCL [Suspect]
     Indication: VENTRICULAR TACHYCARDIA
     Dosage: 200 MG, DAILY
     Route: 048
     Dates: start: 20100524, end: 20100101
  2. RABEPRAZOLE SODIUM [Concomitant]
     Dosage: UNK
  3. ASPIRIN [Concomitant]
     Dosage: UNK
  4. SIGMART [Concomitant]
     Dosage: UNK
  5. WARFARIN [Concomitant]
     Dosage: UNK
  6. ALDACTONE [Concomitant]
     Dosage: UNK
  7. AMOBAN [Concomitant]
     Dosage: UNK
  8. DIOVAN [Concomitant]
     Dosage: UNK
  9. LASIX [Concomitant]
     Dosage: UNK
  10. AMIODARONE HCL [Suspect]
     Dosage: 100 MG, DAILY
     Route: 048
     Dates: start: 20100101
  11. PLETAL [Concomitant]
     Dosage: UNK
  12. CARVEDILOL [Concomitant]
     Dosage: UNK
  13. LOCHOLEST [Concomitant]
     Dosage: UNK
  14. CALBLOCK [Concomitant]

REACTIONS (1)
  - HYPONATRAEMIA [None]
